FAERS Safety Report 12949482 (Version 1)
Quarter: 2016Q4

REPORT INFORMATION
  Report Type: Spontaneous
  Country: US (occurrence: US)
  Receive Date: 20161116
  Receipt Date: 20161116
  Transmission Date: 20170207
  Serious: Yes (Hospitalization)
  Sender: FDA-Public Use
  Company Number: None

PATIENT
  Sex: Female

DRUGS (17)
  1. PROGRAF [Concomitant]
     Active Substance: TACROLIMUS\TACROLIMUS ANHYDROUS
  2. LIPITOR [Concomitant]
     Active Substance: ATORVASTATIN CALCIUM
  3. REGLAN [Concomitant]
     Active Substance: METOCLOPRAMIDE HYDROCHLORIDE
  4. ZYRTEC [Concomitant]
     Active Substance: CETIRIZINE HYDROCHLORIDE
  5. TRIMETHOPRIM. [Concomitant]
     Active Substance: TRIMETHOPRIM
  6. NORVASC [Concomitant]
     Active Substance: AMLODIPINE BESYLATE
  7. LEVOTHYROXINE. [Concomitant]
     Active Substance: LEVOTHYROXINE
  8. FERREX [Concomitant]
  9. CELLCEPT [Concomitant]
     Active Substance: MYCOPHENOLATE MOFETIL\MYCOPHENOLATE MOFETIL HYDROCHLORIDE
  10. BENICAR [Concomitant]
     Active Substance: OLMESARTAN MEDOXOMIL
  11. ASA [Concomitant]
     Active Substance: ASPIRIN
  12. SUTENT [Suspect]
     Active Substance: SUNITINIB MALATE
     Indication: RENAL CANCER
     Route: 048
     Dates: start: 20161012
  13. MEGNEBIND [Concomitant]
  14. LASIX [Concomitant]
     Active Substance: FUROSEMIDE
  15. HUMULIN NOS [Concomitant]
     Active Substance: INSULIN HUMAN
  16. COLACE [Concomitant]
     Active Substance: DOCUSATE SODIUM
  17. CALCIUM [Concomitant]
     Active Substance: CALCIUM

REACTIONS (5)
  - Mouth ulceration [None]
  - Peripheral swelling [None]
  - Blood sodium decreased [None]
  - Dehydration [None]
  - Diarrhoea [None]
